FAERS Safety Report 11347344 (Version 4)
Quarter: 2017Q1

REPORT INFORMATION
  Report Type: Spontaneous
  Country: US (occurrence: US)
  Receive Date: 20150806
  Receipt Date: 20170224
  Transmission Date: 20170428
  Serious: Yes (Hospitalization, Other)
  Sender: FDA-Public Use
  Company Number: US-BAYER-2015-395167

PATIENT
  Age: 26 Year
  Sex: Female
  Weight: 81.63 kg

DRUGS (4)
  1. MIRENA [Suspect]
     Active Substance: LEVONORGESTREL
     Indication: CONTRACEPTION
     Dosage: 20 MCG/24HR, CONT
     Route: 015
     Dates: start: 20140127, end: 20141125
  2. MIDRIN [Concomitant]
     Active Substance: ACETAMINOPHEN\DICHLORALPHENAZONE\ISOMETHEPTENE
     Indication: MUSCLE SPASMS
  3. MIRENA [Suspect]
     Active Substance: LEVONORGESTREL
     Indication: MENORRHAGIA
  4. ALEVE [Concomitant]
     Active Substance: NAPROXEN SODIUM
     Indication: PELVIC PAIN

REACTIONS (7)
  - Genital haemorrhage [None]
  - Device failure [None]
  - Uterine perforation [None]
  - Device difficult to use [None]
  - Procedural pain [None]
  - Drug ineffective [None]
  - Polycystic ovaries [None]

NARRATIVE: CASE EVENT DATE: 201405
